FAERS Safety Report 11470120 (Version 1)
Quarter: 2015Q3

REPORT INFORMATION
  Report Type: Spontaneous
  Country: US (occurrence: US)
  Receive Date: 20150908
  Receipt Date: 20150908
  Transmission Date: 20151125
  Serious: Yes (Hospitalization)
  Sender: FDA-Public Use
  Company Number: US-FRI-1000079347

PATIENT
  Age: 45 Year
  Sex: Male

DRUGS (2)
  1. WELLBUTRIN [Concomitant]
     Active Substance: BUPROPION HYDROCHLORIDE
  2. BYSTOLIC [Suspect]
     Active Substance: NEBIVOLOL HYDROCHLORIDE
     Indication: ACUTE CORONARY SYNDROME
     Dates: start: 20150719, end: 20150731

REACTIONS (6)
  - Presyncope [Unknown]
  - Rebound tachycardia [Recovered/Resolved]
  - Blood pressure decreased [Not Recovered/Not Resolved]
  - Off label use [Recovered/Resolved]
  - Fatigue [Not Recovered/Not Resolved]
  - Unevaluable event [Unknown]

NARRATIVE: CASE EVENT DATE: 20150719
